FAERS Safety Report 7037084-0 (Version None)
Quarter: 2010Q4

REPORT INFORMATION
  Report Type: 
  Country: None (occurrence: None)
  Receive Date: 20101011
  Receipt Date: 20101001
  Transmission Date: 20110411
  Serious: Yes (Hospitalization, Other)
  Sender: FDA-Public Use
  Company Number: JP-ASTRAZENECA-2008AP00367

PATIENT
  Sex: Male
  Weight: 9 kg

DRUGS (288)
  1. PULMICORT RESPULES [Suspect]
     Indication: ASTHMA
     Route: 055
     Dates: start: 20070611, end: 20080203
  2. PULMICORT RESPULES [Suspect]
     Route: 055
     Dates: start: 20080710, end: 20080711
  3. PULMICORT RESPULES [Suspect]
     Route: 055
     Dates: start: 20080920, end: 20080923
  4. PULMICORT RESPULES [Suspect]
     Route: 055
     Dates: start: 20081125, end: 20081205
  5. PULMICORT RESPULES [Suspect]
     Route: 055
     Dates: start: 20090904, end: 20100608
  6. PULMICORT RESPULES [Suspect]
     Route: 055
     Dates: start: 20100609, end: 20100731
  7. ONON DRYSYRUP [Concomitant]
     Indication: ASTHMA
     Route: 048
     Dates: start: 20070604, end: 20070917
  8. ONON DRYSYRUP [Concomitant]
     Route: 048
     Dates: start: 20070918, end: 20071224
  9. ONON DRYSYRUP [Concomitant]
     Route: 048
     Dates: start: 20080404
  10. MEPTIN [Concomitant]
     Indication: PNEUMONIA
     Route: 048
     Dates: start: 20070604, end: 20070703
  11. MEPTIN [Concomitant]
     Indication: ASTHMA
     Route: 048
     Dates: start: 20070604, end: 20070703
  12. MEPTIN [Concomitant]
     Route: 055
     Dates: start: 20090302, end: 20100730
  13. MEPTIN [Concomitant]
     Route: 055
     Dates: start: 20090302, end: 20100730
  14. VENTOLIN [Concomitant]
     Indication: ASTHMA
     Route: 055
     Dates: start: 20070604, end: 20070615
  15. VENTOLIN [Concomitant]
     Route: 055
     Dates: start: 20070723, end: 20070724
  16. VENTOLIN [Concomitant]
     Route: 055
     Dates: start: 20080428, end: 20080503
  17. VENTOLIN [Concomitant]
     Route: 055
     Dates: start: 20080627, end: 20080627
  18. VENTOLIN [Concomitant]
     Route: 055
     Dates: start: 20080709, end: 20080711
  19. VENTOLIN [Concomitant]
     Route: 055
     Dates: start: 20080714, end: 20080714
  20. VENTOLIN [Concomitant]
     Route: 055
     Dates: start: 20080914, end: 20080924
  21. VENTOLIN [Concomitant]
     Route: 055
     Dates: start: 20081104, end: 20081111
  22. VENTOLIN [Concomitant]
     Route: 055
     Dates: start: 20081207, end: 20081212
  23. VENTOLIN [Concomitant]
     Route: 055
     Dates: start: 20090403, end: 20090411
  24. INTAL [Concomitant]
     Indication: ASTHMA
     Route: 055
     Dates: start: 20070604, end: 20070615
  25. INTAL [Concomitant]
     Route: 055
     Dates: start: 20070723, end: 20070724
  26. INTAL [Concomitant]
     Dosage: AS REQUIRED, 1A/DAY
     Route: 055
     Dates: start: 20080213, end: 20100730
  27. INTAL [Concomitant]
     Route: 055
     Dates: start: 20080627, end: 20080627
  28. INTAL [Concomitant]
     Route: 055
     Dates: start: 20080709, end: 20080711
  29. INTAL [Concomitant]
     Route: 055
     Dates: start: 20080914, end: 20080924
  30. INTAL [Concomitant]
     Route: 055
     Dates: start: 20081207, end: 20081212
  31. INTAL [Concomitant]
     Route: 055
     Dates: start: 20090403, end: 20090411
  32. MUCODYNE [Concomitant]
     Indication: PNEUMONIA
     Route: 048
     Dates: start: 20070604, end: 20070703
  33. MUCODYNE [Concomitant]
     Indication: OTITIS MEDIA
     Route: 048
     Dates: start: 20070604, end: 20070703
  34. MUCODYNE [Concomitant]
     Indication: ASTHMA
     Route: 048
     Dates: start: 20070604, end: 20070703
  35. MUCODYNE [Concomitant]
     Route: 048
     Dates: start: 20071022, end: 20071028
  36. MUCODYNE [Concomitant]
     Route: 048
     Dates: start: 20071022, end: 20071028
  37. MUCODYNE [Concomitant]
     Route: 048
     Dates: start: 20071022, end: 20071028
  38. MUCODYNE [Concomitant]
     Route: 048
     Dates: start: 20081114
  39. MUCODYNE [Concomitant]
     Route: 048
     Dates: start: 20081114
  40. MUCODYNE [Concomitant]
     Route: 048
     Dates: start: 20081114
  41. BIOFERMIN R [Concomitant]
     Indication: ENTEROCOLITIS
     Route: 048
     Dates: start: 20070608, end: 20070620
  42. BIOFERMIN R [Concomitant]
     Indication: DIARRHOEA
     Route: 048
     Dates: start: 20070608, end: 20070620
  43. BIOFERMIN R [Concomitant]
     Indication: PROPHYLAXIS AGAINST DIARRHOEA
     Route: 048
     Dates: start: 20070608, end: 20070620
  44. BIOFERMIN R [Concomitant]
     Route: 048
     Dates: start: 20070816, end: 20070823
  45. BIOFERMIN R [Concomitant]
     Route: 048
     Dates: start: 20070816, end: 20070823
  46. BIOFERMIN R [Concomitant]
     Route: 048
     Dates: start: 20070816, end: 20070823
  47. BIOFERMIN R [Concomitant]
     Route: 048
     Dates: start: 20070831, end: 20070903
  48. BIOFERMIN R [Concomitant]
     Route: 048
     Dates: start: 20070831, end: 20070903
  49. BIOFERMIN R [Concomitant]
     Route: 048
     Dates: start: 20070831, end: 20070903
  50. BIOFERMIN R [Concomitant]
     Route: 048
     Dates: start: 20070907, end: 20070913
  51. BIOFERMIN R [Concomitant]
     Route: 048
     Dates: start: 20070907, end: 20070913
  52. BIOFERMIN R [Concomitant]
     Route: 048
     Dates: start: 20070907, end: 20070913
  53. BIOFERMIN R [Concomitant]
     Route: 048
     Dates: start: 20071009, end: 20071012
  54. BIOFERMIN R [Concomitant]
     Route: 048
     Dates: start: 20071009, end: 20071012
  55. BIOFERMIN R [Concomitant]
     Route: 048
     Dates: start: 20071009, end: 20071012
  56. BIOFERMIN R [Concomitant]
     Route: 048
     Dates: start: 20071012, end: 20071016
  57. BIOFERMIN R [Concomitant]
     Route: 048
     Dates: start: 20071012, end: 20071016
  58. BIOFERMIN R [Concomitant]
     Route: 048
     Dates: start: 20071012, end: 20071016
  59. BIOFERMIN R [Concomitant]
     Route: 048
     Dates: start: 20071022, end: 20071028
  60. BIOFERMIN R [Concomitant]
     Route: 048
     Dates: start: 20071022, end: 20071028
  61. BIOFERMIN R [Concomitant]
     Route: 048
     Dates: start: 20071022, end: 20071028
  62. BIOFERMIN R [Concomitant]
     Route: 048
     Dates: start: 20071206, end: 20080105
  63. BIOFERMIN R [Concomitant]
     Route: 048
     Dates: start: 20071206, end: 20080105
  64. BIOFERMIN R [Concomitant]
     Route: 048
     Dates: start: 20071206, end: 20080105
  65. BIOFERMIN R [Concomitant]
     Route: 048
     Dates: start: 20080422, end: 20080507
  66. BIOFERMIN R [Concomitant]
     Route: 048
     Dates: start: 20080422, end: 20080507
  67. BIOFERMIN R [Concomitant]
     Route: 048
     Dates: start: 20080422, end: 20080507
  68. BIOFERMIN R [Concomitant]
     Route: 048
     Dates: start: 20080626, end: 20080629
  69. BIOFERMIN R [Concomitant]
     Route: 048
     Dates: start: 20080626, end: 20080629
  70. BIOFERMIN R [Concomitant]
     Route: 048
     Dates: start: 20080626, end: 20080629
  71. BIOFERMIN R [Concomitant]
     Route: 048
     Dates: start: 20080914, end: 20080927
  72. BIOFERMIN R [Concomitant]
     Route: 048
     Dates: start: 20080914, end: 20080927
  73. BIOFERMIN R [Concomitant]
     Route: 048
     Dates: start: 20080914, end: 20080927
  74. BIOFERMIN R [Concomitant]
     Route: 048
     Dates: start: 20081014, end: 20081018
  75. BIOFERMIN R [Concomitant]
     Route: 048
     Dates: start: 20081014, end: 20081018
  76. BIOFERMIN R [Concomitant]
     Route: 048
     Dates: start: 20081014, end: 20081018
  77. BIOFERMIN R [Concomitant]
     Route: 048
     Dates: start: 20081104, end: 20081115
  78. BIOFERMIN R [Concomitant]
     Route: 048
     Dates: start: 20081104, end: 20081115
  79. BIOFERMIN R [Concomitant]
     Route: 048
     Dates: start: 20081104, end: 20081115
  80. BIOFERMIN R [Concomitant]
     Route: 048
     Dates: start: 20090223, end: 20090228
  81. BIOFERMIN R [Concomitant]
     Route: 048
     Dates: start: 20090223, end: 20090228
  82. BIOFERMIN R [Concomitant]
     Route: 048
     Dates: start: 20090223, end: 20090228
  83. BIOFERMIN R [Concomitant]
     Route: 048
     Dates: start: 20090408, end: 20090412
  84. BIOFERMIN R [Concomitant]
     Route: 048
     Dates: start: 20090408, end: 20090412
  85. BIOFERMIN R [Concomitant]
     Route: 048
     Dates: start: 20090408, end: 20090412
  86. BIOFERMIN R [Concomitant]
     Route: 048
     Dates: start: 20090430, end: 20090504
  87. BIOFERMIN R [Concomitant]
     Route: 048
     Dates: start: 20090430, end: 20090504
  88. BIOFERMIN R [Concomitant]
     Route: 048
     Dates: start: 20090430, end: 20090504
  89. BIOFERMIN R [Concomitant]
     Route: 048
     Dates: start: 20090518, end: 20090523
  90. BIOFERMIN R [Concomitant]
     Route: 048
     Dates: start: 20090518, end: 20090523
  91. BIOFERMIN R [Concomitant]
     Route: 048
     Dates: start: 20090518, end: 20090523
  92. BIOFERMIN R [Concomitant]
     Route: 048
     Dates: start: 20090712, end: 20090722
  93. BIOFERMIN R [Concomitant]
     Route: 048
     Dates: start: 20090712, end: 20090722
  94. BIOFERMIN R [Concomitant]
     Route: 048
     Dates: start: 20090712, end: 20090722
  95. BIOFERMIN R [Concomitant]
     Route: 048
     Dates: start: 20090811, end: 20090816
  96. BIOFERMIN R [Concomitant]
     Route: 048
     Dates: start: 20090811, end: 20090816
  97. BIOFERMIN R [Concomitant]
     Route: 048
     Dates: start: 20090811, end: 20090816
  98. BIOFERMIN R [Concomitant]
     Route: 048
     Dates: start: 20091022, end: 20091027
  99. BIOFERMIN R [Concomitant]
     Route: 048
     Dates: start: 20091022, end: 20091027
  100. BIOFERMIN R [Concomitant]
     Route: 048
     Dates: start: 20091022, end: 20091027
  101. BIOFERMIN R [Concomitant]
     Route: 048
     Dates: start: 20100726, end: 20100730
  102. BIOFERMIN R [Concomitant]
     Route: 048
     Dates: start: 20100726, end: 20100730
  103. BIOFERMIN R [Concomitant]
     Route: 048
     Dates: start: 20100726, end: 20100730
  104. MEIACT [Concomitant]
     Indication: PNEUMONIA
     Route: 048
     Dates: start: 20070608, end: 20070613
  105. MEIACT [Concomitant]
     Indication: OTITIS MEDIA
     Route: 048
     Dates: start: 20070608, end: 20070613
  106. MEIACT [Concomitant]
     Indication: PHARYNGITIS
     Route: 048
     Dates: start: 20070608, end: 20070613
  107. MEIACT [Concomitant]
     Indication: BRONCHITIS
     Route: 048
     Dates: start: 20070608, end: 20070613
  108. MEIACT [Concomitant]
     Indication: TONSILLITIS
     Route: 048
     Dates: start: 20070608, end: 20070613
  109. MEIACT [Concomitant]
     Route: 048
     Dates: start: 20071009, end: 20071012
  110. MEIACT [Concomitant]
     Route: 048
     Dates: start: 20071009, end: 20071012
  111. MEIACT [Concomitant]
     Route: 048
     Dates: start: 20071009, end: 20071012
  112. MEIACT [Concomitant]
     Route: 048
     Dates: start: 20071009, end: 20071012
  113. MEIACT [Concomitant]
     Route: 048
     Dates: start: 20071009, end: 20071012
  114. MEIACT [Concomitant]
     Route: 048
     Dates: start: 20071022, end: 20071028
  115. MEIACT [Concomitant]
     Route: 048
     Dates: start: 20071022, end: 20071028
  116. MEIACT [Concomitant]
     Route: 048
     Dates: start: 20071022, end: 20071028
  117. MEIACT [Concomitant]
     Route: 048
     Dates: start: 20071022, end: 20071028
  118. MEIACT [Concomitant]
     Route: 048
     Dates: start: 20071022, end: 20071028
  119. MEIACT [Concomitant]
     Route: 048
     Dates: start: 20071220, end: 20080107
  120. MEIACT [Concomitant]
     Route: 048
     Dates: start: 20071220, end: 20080107
  121. MEIACT [Concomitant]
     Route: 048
     Dates: start: 20071220, end: 20080107
  122. MEIACT [Concomitant]
     Route: 048
     Dates: start: 20071220, end: 20080107
  123. MEIACT [Concomitant]
     Route: 048
     Dates: start: 20071220, end: 20080107
  124. MEIACT [Concomitant]
     Route: 048
     Dates: start: 20080502, end: 20080507
  125. MEIACT [Concomitant]
     Route: 048
     Dates: start: 20080502, end: 20080507
  126. MEIACT [Concomitant]
     Route: 048
     Dates: start: 20080502, end: 20080507
  127. MEIACT [Concomitant]
     Route: 048
     Dates: start: 20080502, end: 20080507
  128. MEIACT [Concomitant]
     Route: 048
     Dates: start: 20080502, end: 20080507
  129. MEIACT [Concomitant]
     Route: 048
     Dates: start: 20080626, end: 20080629
  130. MEIACT [Concomitant]
     Route: 048
     Dates: start: 20080626, end: 20080629
  131. MEIACT [Concomitant]
     Route: 048
     Dates: start: 20080626, end: 20080629
  132. MEIACT [Concomitant]
     Route: 048
     Dates: start: 20080626, end: 20080629
  133. MEIACT [Concomitant]
     Route: 048
     Dates: start: 20080626, end: 20080629
  134. MEIACT [Concomitant]
     Route: 048
     Dates: start: 20090111, end: 20090121
  135. MEIACT [Concomitant]
     Route: 048
     Dates: start: 20090111, end: 20090121
  136. MEIACT [Concomitant]
     Route: 048
     Dates: start: 20090111, end: 20090121
  137. MEIACT [Concomitant]
     Route: 048
     Dates: start: 20090111, end: 20090121
  138. MEIACT [Concomitant]
     Route: 048
     Dates: start: 20090111, end: 20090121
  139. MEIACT [Concomitant]
     Route: 048
     Dates: start: 20090430, end: 20090504
  140. MEIACT [Concomitant]
     Route: 048
     Dates: start: 20090430, end: 20090504
  141. MEIACT [Concomitant]
     Route: 048
     Dates: start: 20090430, end: 20090504
  142. MEIACT [Concomitant]
     Route: 048
     Dates: start: 20090430, end: 20090504
  143. MEIACT [Concomitant]
     Route: 048
     Dates: start: 20090430, end: 20090504
  144. MEIACT [Concomitant]
     Route: 048
     Dates: start: 20090518, end: 20090523
  145. MEIACT [Concomitant]
     Route: 048
     Dates: start: 20090518, end: 20090523
  146. MEIACT [Concomitant]
     Route: 048
     Dates: start: 20090518, end: 20090523
  147. MEIACT [Concomitant]
     Route: 048
     Dates: start: 20090518, end: 20090523
  148. MEIACT [Concomitant]
     Route: 048
     Dates: start: 20090518, end: 20090523
  149. BOSMIN [Concomitant]
     Indication: PSEUDOCROUP
     Route: 055
     Dates: start: 20070610, end: 20070618
  150. BOSMIN [Concomitant]
     Dosage: AS REQUIRED, 0.1 ML/DAY (MIXED WITH NORMAL SALINE 2 ML)
     Route: 055
     Dates: start: 20100729, end: 20100730
  151. TARIVID FOR OTIC USE [Concomitant]
     Indication: OTITIS MEDIA
     Route: 001
     Dates: start: 20070611, end: 20070618
  152. TARIVID FOR OTIC USE [Concomitant]
     Route: 001
     Dates: start: 20071009, end: 20071012
  153. KLARICID:DRYSYRUP [Concomitant]
     Indication: PNEUMONIA
     Route: 048
     Dates: start: 20070613, end: 20070620
  154. KLARICID:DRYSYRUP [Concomitant]
     Indication: OTITIS MEDIA
     Route: 048
     Dates: start: 20070613, end: 20070620
  155. KLARICID:DRYSYRUP [Concomitant]
     Indication: CHRONIC SINUSITIS
     Route: 048
     Dates: start: 20070613, end: 20070620
  156. KLARICID:DRYSYRUP [Concomitant]
     Indication: BRONCHITIS
     Route: 048
     Dates: start: 20070613, end: 20070620
  157. KLARICID:DRYSYRUP [Concomitant]
     Indication: UPPER RESPIRATORY TRACT INFLAMMATION
     Route: 048
     Dates: start: 20070613, end: 20070620
  158. KLARICID:DRYSYRUP [Concomitant]
     Indication: TONSILLITIS
     Route: 048
     Dates: start: 20070613, end: 20070620
  159. KLARICID:DRYSYRUP [Concomitant]
     Route: 048
     Dates: start: 20071210, end: 20071217
  160. KLARICID:DRYSYRUP [Concomitant]
     Route: 048
     Dates: start: 20071210, end: 20071217
  161. KLARICID:DRYSYRUP [Concomitant]
     Route: 048
     Dates: start: 20071210, end: 20071217
  162. KLARICID:DRYSYRUP [Concomitant]
     Route: 048
     Dates: start: 20071210, end: 20071217
  163. KLARICID:DRYSYRUP [Concomitant]
     Route: 048
     Dates: start: 20071210, end: 20071217
  164. KLARICID:DRYSYRUP [Concomitant]
     Route: 048
     Dates: start: 20071210, end: 20071217
  165. KLARICID:DRYSYRUP [Concomitant]
     Route: 048
     Dates: start: 20081114, end: 20090220
  166. KLARICID:DRYSYRUP [Concomitant]
     Route: 048
     Dates: start: 20081114, end: 20090220
  167. KLARICID:DRYSYRUP [Concomitant]
     Route: 048
     Dates: start: 20081114, end: 20090220
  168. KLARICID:DRYSYRUP [Concomitant]
     Route: 048
     Dates: start: 20081114, end: 20090220
  169. KLARICID:DRYSYRUP [Concomitant]
     Route: 048
     Dates: start: 20081114, end: 20090220
  170. KLARICID:DRYSYRUP [Concomitant]
     Route: 048
     Dates: start: 20081114, end: 20090220
  171. KLARICID:DRYSYRUP [Concomitant]
     Route: 048
     Dates: start: 20091022, end: 20091027
  172. KLARICID:DRYSYRUP [Concomitant]
     Route: 048
     Dates: start: 20091022, end: 20091027
  173. KLARICID:DRYSYRUP [Concomitant]
     Route: 048
     Dates: start: 20091022, end: 20091027
  174. KLARICID:DRYSYRUP [Concomitant]
     Route: 048
     Dates: start: 20091022, end: 20091027
  175. KLARICID:DRYSYRUP [Concomitant]
     Route: 048
     Dates: start: 20091022, end: 20091027
  176. KLARICID:DRYSYRUP [Concomitant]
     Route: 048
     Dates: start: 20091022, end: 20091027
  177. KLARICID:DRYSYRUP [Concomitant]
     Route: 048
     Dates: start: 20100219, end: 20100223
  178. KLARICID:DRYSYRUP [Concomitant]
     Route: 048
     Dates: start: 20100219, end: 20100223
  179. KLARICID:DRYSYRUP [Concomitant]
     Route: 048
     Dates: start: 20100219, end: 20100223
  180. KLARICID:DRYSYRUP [Concomitant]
     Route: 048
     Dates: start: 20100219, end: 20100223
  181. KLARICID:DRYSYRUP [Concomitant]
     Route: 048
     Dates: start: 20100219, end: 20100223
  182. KLARICID:DRYSYRUP [Concomitant]
     Route: 048
     Dates: start: 20100219, end: 20100223
  183. KLARICID:DRYSYRUP [Concomitant]
     Route: 048
     Dates: start: 20100726, end: 20100730
  184. KLARICID:DRYSYRUP [Concomitant]
     Route: 048
     Dates: start: 20100726, end: 20100730
  185. KLARICID:DRYSYRUP [Concomitant]
     Route: 048
     Dates: start: 20100726, end: 20100730
  186. KLARICID:DRYSYRUP [Concomitant]
     Route: 048
     Dates: start: 20100726, end: 20100730
  187. KLARICID:DRYSYRUP [Concomitant]
     Route: 048
     Dates: start: 20100726, end: 20100730
  188. KLARICID:DRYSYRUP [Concomitant]
     Route: 048
     Dates: start: 20100726, end: 20100730
  189. HOKUNALIN:TAPE [Concomitant]
     Indication: ASTHMA
     Dosage: NUMBER OF SEPARATE DOSAGES UNKNOWN
     Route: 062
     Dates: start: 20070616, end: 20070627
  190. HOKUNALIN:TAPE [Concomitant]
     Dosage: NUMBER OF SEPARATE DOSAGES UNKNOWN
     Route: 062
     Dates: start: 20071102, end: 20071203
  191. HOKUNALIN:TAPE [Concomitant]
     Route: 062
     Dates: start: 20080625, end: 20080629
  192. MUCOSOLVAN DS FOR PEDIATRIC [Concomitant]
     Indication: ASTHMA
     Route: 048
     Dates: start: 20070709, end: 20070716
  193. MUCOSOLVAN DS FOR PEDIATRIC [Concomitant]
     Indication: BRONCHITIS
     Route: 048
     Dates: start: 20070709, end: 20070716
  194. MUCOSOLVAN DS FOR PEDIATRIC [Concomitant]
     Route: 048
     Dates: start: 20071102, end: 20071203
  195. MUCOSOLVAN DS FOR PEDIATRIC [Concomitant]
     Route: 048
     Dates: start: 20071102, end: 20071203
  196. MUCOSOLVAN DS FOR PEDIATRIC [Concomitant]
     Route: 048
     Dates: start: 20071210, end: 20080117
  197. MUCOSOLVAN DS FOR PEDIATRIC [Concomitant]
     Route: 048
     Dates: start: 20071210, end: 20080117
  198. MUCOSOLVAN DS FOR PEDIATRIC [Concomitant]
     Route: 048
     Dates: start: 20080227, end: 20080315
  199. MUCOSOLVAN DS FOR PEDIATRIC [Concomitant]
     Route: 048
     Dates: start: 20080227, end: 20080315
  200. MUCOSOLVAN DS FOR PEDIATRIC [Concomitant]
     Route: 048
     Dates: start: 20080418, end: 20080514
  201. MUCOSOLVAN DS FOR PEDIATRIC [Concomitant]
     Route: 048
     Dates: start: 20080418, end: 20080514
  202. MUCOSOLVAN DS FOR PEDIATRIC [Concomitant]
     Route: 048
     Dates: start: 20080625, end: 20080629
  203. MUCOSOLVAN DS FOR PEDIATRIC [Concomitant]
     Route: 048
     Dates: start: 20080625, end: 20080629
  204. MUCOSOLVAN DS FOR PEDIATRIC [Concomitant]
     Route: 048
     Dates: start: 20080711, end: 20080725
  205. MUCOSOLVAN DS FOR PEDIATRIC [Concomitant]
     Route: 048
     Dates: start: 20080711, end: 20080725
  206. MUCOSOLVAN DS FOR PEDIATRIC [Concomitant]
     Route: 048
     Dates: start: 20081006, end: 20081013
  207. MUCOSOLVAN DS FOR PEDIATRIC [Concomitant]
     Route: 048
     Dates: start: 20081006, end: 20081013
  208. MUCOSOLVAN DS FOR PEDIATRIC [Concomitant]
     Route: 048
     Dates: start: 20081024
  209. MUCOSOLVAN DS FOR PEDIATRIC [Concomitant]
     Route: 048
     Dates: start: 20081024
  210. MUCOSOLVAN DS FOR PEDIATRIC [Concomitant]
     Route: 048
     Dates: start: 20090113, end: 20090123
  211. MUCOSOLVAN DS FOR PEDIATRIC [Concomitant]
     Route: 048
     Dates: start: 20090113, end: 20090123
  212. MUCOSOLVAN DS FOR PEDIATRIC [Concomitant]
     Route: 048
     Dates: start: 20090202, end: 20090209
  213. MUCOSOLVAN DS FOR PEDIATRIC [Concomitant]
     Route: 048
     Dates: start: 20090202, end: 20090209
  214. BERACHIN:SYRUP [Concomitant]
     Indication: ASTHMA
     Route: 048
     Dates: start: 20070709, end: 20070716
  215. BERACHIN:SYRUP [Concomitant]
     Indication: BRONCHITIS
     Route: 048
     Dates: start: 20070709, end: 20070716
  216. BERACHIN:SYRUP [Concomitant]
     Route: 048
     Dates: start: 20071012, end: 20071020
  217. BERACHIN:SYRUP [Concomitant]
     Route: 048
     Dates: start: 20071012, end: 20071020
  218. BERACHIN:SYRUP [Concomitant]
     Route: 048
     Dates: start: 20071102, end: 20071203
  219. BERACHIN:SYRUP [Concomitant]
     Route: 048
     Dates: start: 20071102, end: 20071203
  220. BERACHIN:SYRUP [Concomitant]
     Route: 048
     Dates: start: 20071210, end: 20080117
  221. BERACHIN:SYRUP [Concomitant]
     Route: 048
     Dates: start: 20071210, end: 20080117
  222. BERACHIN:SYRUP [Concomitant]
     Route: 048
     Dates: start: 20080227, end: 20080315
  223. BERACHIN:SYRUP [Concomitant]
     Route: 048
     Dates: start: 20080227, end: 20080315
  224. BERACHIN:SYRUP [Concomitant]
     Route: 048
     Dates: start: 20080418, end: 20080514
  225. BERACHIN:SYRUP [Concomitant]
     Route: 048
     Dates: start: 20080418, end: 20080514
  226. BERACHIN:SYRUP [Concomitant]
     Route: 048
     Dates: start: 20080625, end: 20080629
  227. BERACHIN:SYRUP [Concomitant]
     Route: 048
     Dates: start: 20080625, end: 20080629
  228. BERACHIN:SYRUP [Concomitant]
     Route: 048
     Dates: start: 20080711, end: 20080725
  229. BERACHIN:SYRUP [Concomitant]
     Route: 048
     Dates: start: 20080711, end: 20080725
  230. BERACHIN:SYRUP [Concomitant]
     Route: 048
     Dates: start: 20081006, end: 20081013
  231. BERACHIN:SYRUP [Concomitant]
     Route: 048
     Dates: start: 20081006, end: 20081013
  232. BERACHIN:SYRUP [Concomitant]
     Route: 048
     Dates: start: 20081024, end: 20081118
  233. BERACHIN:SYRUP [Concomitant]
     Route: 048
     Dates: start: 20081024, end: 20081118
  234. BERACHIN:SYRUP [Concomitant]
     Route: 048
     Dates: start: 20090507, end: 20090831
  235. BERACHIN:SYRUP [Concomitant]
     Route: 048
     Dates: start: 20090507, end: 20090831
  236. BERACHIN:SYRUP [Concomitant]
     Route: 048
     Dates: start: 20090113, end: 20090123
  237. BERACHIN:SYRUP [Concomitant]
     Route: 048
     Dates: start: 20090113, end: 20090123
  238. BERACHIN:SYRUP [Concomitant]
     Dosage: NUMBER OF SEPARATE DOSAGES UNKNOWN
     Route: 048
     Dates: start: 20090202, end: 20090209
  239. BERACHIN:SYRUP [Concomitant]
     Dosage: NUMBER OF SEPARATE DOSAGES UNKNOWN
     Route: 048
     Dates: start: 20090202, end: 20090209
  240. SEISHOKU [Concomitant]
     Indication: ASTHMA
     Route: 041
     Dates: start: 20080714, end: 20080714
  241. SEISHOKU [Concomitant]
     Indication: PROPHYLAXIS AGAINST DEHYDRATION
     Route: 041
     Dates: start: 20080714, end: 20080714
  242. SEISHOKU [Concomitant]
     Indication: PSEUDOCROUP
     Route: 041
     Dates: start: 20080714, end: 20080714
  243. SEISHOKU [Concomitant]
     Route: 041
     Dates: start: 20080914, end: 20080914
  244. SEISHOKU [Concomitant]
     Route: 041
     Dates: start: 20080914, end: 20080914
  245. SEISHOKU [Concomitant]
     Route: 041
     Dates: start: 20080914, end: 20080914
  246. SEISHOKU [Concomitant]
     Route: 041
     Dates: start: 20100729, end: 20100730
  247. SEISHOKU [Concomitant]
     Route: 041
     Dates: start: 20100729, end: 20100730
  248. SEISHOKU [Concomitant]
     Route: 041
     Dates: start: 20100729, end: 20100730
  249. ALPINY [Concomitant]
     Indication: PYREXIA
     Route: 054
     Dates: start: 20070810, end: 20070815
  250. ALPINY [Concomitant]
     Route: 054
     Dates: start: 20071022, end: 20071026
  251. CLAVAMOX [Concomitant]
     Indication: OTITIS MEDIA
     Route: 048
     Dates: start: 20070907, end: 20070913
  252. CLAVAMOX [Concomitant]
     Route: 048
     Dates: start: 20081110, end: 20081110
  253. CLAVAMOX [Concomitant]
     Route: 048
     Dates: start: 20091208, end: 20091215
  254. KN-3B [Concomitant]
     Indication: DEHYDRATION
     Route: 041
     Dates: start: 20071220, end: 20071228
  255. KN-3B [Concomitant]
     Route: 041
     Dates: start: 20080107, end: 20080112
  256. KN-3B [Concomitant]
     Route: 041
     Dates: start: 20080205, end: 20080210
  257. KN-3B [Concomitant]
     Route: 041
     Dates: start: 20080428, end: 20080502
  258. KN-3B [Concomitant]
     Route: 041
     Dates: start: 20081104, end: 20081110
  259. KN-3B [Concomitant]
     Route: 041
     Dates: start: 20081207, end: 20081211
  260. KN-3B [Concomitant]
     Route: 041
     Dates: start: 20090403, end: 20090408
  261. KN-3B [Concomitant]
     Route: 041
     Dates: start: 20090203, end: 20090205
  262. KIPRES [Concomitant]
     Indication: ASTHMA
     Route: 048
     Dates: start: 20071225, end: 20080325
  263. ZADITEN [Concomitant]
     Indication: RHINITIS ALLERGIC
     Route: 048
     Dates: start: 20080227, end: 20080305
  264. AMOXICILLIN TRIHYDRATE [Concomitant]
     Indication: UPPER RESPIRATORY TRACT INFLAMMATION
     Route: 048
     Dates: start: 20080422, end: 20080428
  265. AMOXICILLIN TRIHYDRATE [Concomitant]
     Indication: TONSILLITIS
     Route: 048
     Dates: start: 20080422, end: 20080428
  266. AMOXICILLIN TRIHYDRATE [Concomitant]
     Route: 048
     Dates: start: 20090223, end: 20090228
  267. AMOXICILLIN TRIHYDRATE [Concomitant]
     Route: 048
     Dates: start: 20090223, end: 20090228
  268. AMOXICILLIN TRIHYDRATE [Concomitant]
     Route: 048
     Dates: start: 20090712, end: 20090722
  269. AMOXICILLIN TRIHYDRATE [Concomitant]
     Route: 048
     Dates: start: 20090712, end: 20090722
  270. GLUCOSE [Concomitant]
     Indication: PROPHYLAXIS AGAINST DEHYDRATION
     Route: 041
     Dates: start: 20080914, end: 20080914
  271. SOLU-MEDROL [Concomitant]
     Indication: ASTHMA
     Route: 041
     Dates: start: 20080916, end: 20080921
  272. VICCLOX [Concomitant]
     Indication: VARICELLA
     Route: 048
     Dates: start: 20081010, end: 20081017
  273. FLOMOX [Concomitant]
     Indication: OTITIS MEDIA ACUTE
     Route: 048
     Dates: start: 20081014, end: 20081018
  274. FLOMOX [Concomitant]
     Indication: BRONCHITIS
     Route: 048
     Dates: start: 20081014, end: 20081018
  275. FLOMOX [Concomitant]
     Route: 048
     Dates: start: 20090811, end: 20090816
  276. FLOMOX [Concomitant]
     Route: 048
     Dates: start: 20090811, end: 20090816
  277. CLAFORAN [Concomitant]
     Indication: PNEUMONIA
     Route: 041
     Dates: start: 20081104, end: 20081110
  278. CLAFORAN [Concomitant]
     Route: 041
     Dates: start: 20081207, end: 20081211
  279. TAMIFLU:DRYSYRUP [Concomitant]
     Route: 048
     Dates: start: 20081204, end: 20081209
  280. BIOFERMIN [Concomitant]
     Indication: GASTROENTERITIS
     Route: 048
     Dates: start: 20090804, end: 20090809
  281. BESTRON [Concomitant]
     Indication: CONJUNCTIVITIS
     Dosage: OPTIMAL DOSE
     Route: 047
     Dates: start: 20090807, end: 20090812
  282. ZYRTEC [Concomitant]
     Indication: RHINITIS
     Route: 048
     Dates: start: 20090814, end: 20090821
  283. TRANEXAMIC ACID [Concomitant]
     Indication: UPPER RESPIRATORY TRACT INFLAMMATION
     Route: 048
     Dates: start: 20091019, end: 20091023
  284. NEUZYM [Concomitant]
     Indication: UPPER RESPIRATORY TRACT INFLAMMATION
     Route: 048
     Dates: start: 20091019, end: 20091028
  285. GASTER [Concomitant]
     Indication: REFLUX OESOPHAGITIS
     Route: 048
     Dates: start: 20091211
  286. OFLOXACIN [Concomitant]
     Indication: CONJUNCTIVITIS
     Dosage: OPTIMAL DOSE
     Route: 047
     Dates: start: 20100319, end: 20100324
  287. UNKNOWNDRUG [Concomitant]
     Indication: ASTHMA
     Dosage: 2L/MIN AS REQUIRED
     Route: 055
     Dates: start: 20080914, end: 20080921
  288. UNKNOWNDRUG [Concomitant]
     Dosage: 2L/MIN AS REQUIRED
     Route: 055
     Dates: start: 20081105, end: 20081105

REACTIONS (9)
  - ACUTE TONSILLITIS [None]
  - BRONCHITIS [None]
  - CONJUNCTIVITIS [None]
  - CROUP INFECTIOUS [None]
  - GASTROENTERITIS [None]
  - PNEUMONIA [None]
  - REFLUX OESOPHAGITIS [None]
  - RHINITIS [None]
  - SINUSITIS [None]
